FAERS Safety Report 15790996 (Version 1)
Quarter: 2019Q1

REPORT INFORMATION
  Report Type: Spontaneous
  Country: US (occurrence: US)
  Receive Date: 20190104
  Receipt Date: 20190104
  Transmission Date: 20190417
  Serious: Yes (Other)
  Sender: FDA-Public Use
  Company Number: US-PURDUE-USA-2019-0145567

PATIENT
  Sex: Female

DRUGS (2)
  1. MORPHINE SULFATE EXTENDED-RELEASE TABLETS (RHODES 74-769, 74-862) [Suspect]
     Active Substance: MORPHINE SULFATE
     Indication: PAIN
     Dosage: UNK
     Route: 048
  2. MORPHINE SULFATE. [Suspect]
     Active Substance: MORPHINE SULFATE
     Indication: PAIN
     Dosage: UNK
     Route: 048

REACTIONS (2)
  - Suicidal ideation [Unknown]
  - Inadequate analgesia [Unknown]
